FAERS Safety Report 20023419 (Version 2)
Quarter: 2021Q4

REPORT INFORMATION
  Report Type: Spontaneous
  Country: US (occurrence: US)
  Receive Date: 20211102
  Receipt Date: 20211108
  Transmission Date: 20220304
  Serious: Yes (Death, Hospitalization)
  Sender: FDA-Public Use
  Company Number: US-ELI_LILLY_AND_COMPANY-US202110011994

PATIENT
  Sex: Female

DRUGS (2)
  1. ADCIRCA [Suspect]
     Active Substance: TADALAFIL
     Indication: Pulmonary arterial hypertension
     Dosage: 40 MG, DAILY
     Route: 048
     Dates: start: 20211020
  2. REMODULIN [Suspect]
     Active Substance: TREPROSTINIL
     Indication: Pulmonary arterial hypertension
     Dosage: 17.8NG/KG/MIN, DAILY
     Route: 058
     Dates: start: 20210821, end: 20211014

REACTIONS (5)
  - Death [Fatal]
  - Sepsis [Unknown]
  - Pyrexia [Unknown]
  - White blood cell count increased [Unknown]
  - Bacterial test positive [Unknown]
